FAERS Safety Report 5253111-5 (Version None)
Quarter: 2007Q1

REPORT INFORMATION
  Report Type: 
  Country: None (occurrence: None)
  Receive Date: 20070301
  Receipt Date: 20070227
  Transmission Date: 20070707
  Serious: Yes (Disabling)
  Sender: FDA-Public Use
  Company Number: US-GLAXOSMITHKLINE-A0641146A

PATIENT
  Age: 30 Year
  Sex: Female

DRUGS (3)
  1. PAXIL [Suspect]
     Indication: POSTPARTUM DEPRESSION
     Dosage: 40MG PER DAY
     Route: 048
     Dates: start: 20060101, end: 20070101
  2. ATIVAN [Concomitant]
  3. SYNTHROID [Concomitant]

REACTIONS (3)
  - BALANCE DISORDER [None]
  - DIZZINESS [None]
  - TREMOR [None]
